FAERS Safety Report 11121967 (Version 7)
Quarter: 2018Q2

REPORT INFORMATION
  Report Type: Report from Study
  Country: BR (occurrence: BR)
  Receive Date: 20150519
  Receipt Date: 20180529
  Transmission Date: 20180711
  Serious: Yes (Death, Hospitalization, Other)
  Sender: FDA-Public Use
  Company Number: PHHY2015BR058298

PATIENT
  Age: 43 Year
  Sex: Male
  Weight: 71 kg

DRUGS (6)
  1. EXJADE [Suspect]
     Active Substance: DEFERASIROX
     Dosage: 500 MG, QID (FOUR TABLETS A DAY)
     Route: 048
  2. EXJADE [Suspect]
     Active Substance: DEFERASIROX
     Indication: SICKLE CELL ANAEMIA
     Dosage: 5 DF  (45 MG/KG), QD
     Route: 048
     Dates: start: 2013
  3. EXJADE [Suspect]
     Active Substance: DEFERASIROX
     Dosage: 4 DF, QD (2000 MG)
     Route: 048
     Dates: start: 2015
  4. FOLIC ACID. [Concomitant]
     Active Substance: FOLIC ACID
     Indication: SICKLE CELL ANAEMIA
     Dosage: 1 DF, QD
     Route: 048
  5. HYDREA [Concomitant]
     Active Substance: HYDROXYUREA
     Indication: SICKLE CELL ANAEMIA
     Dosage: 1 DF, QD
     Route: 048
  6. OMEPRAZOL [Concomitant]
     Active Substance: OMEPRAZOLE
     Indication: PRODUCT USED FOR UNKNOWN INDICATION
     Dosage: 1 DF, QD
     Route: 048

REACTIONS (14)
  - Nosocomial infection [Fatal]
  - Sickle cell anaemia with crisis [Recovered/Resolved]
  - Diarrhoea [Not Recovered/Not Resolved]
  - Pneumonia [Not Recovered/Not Resolved]
  - Thyroid disorder [Unknown]
  - Seizure [Not Recovered/Not Resolved]
  - Syncope [Recovered/Resolved]
  - Seizure [Recovered/Resolved]
  - Arrhythmia [Unknown]
  - Cerebral disorder [Unknown]
  - Weight decreased [Unknown]
  - Loss of consciousness [Unknown]
  - Bacterial infection [Unknown]
  - Chest pain [Recovered/Resolved]

NARRATIVE: CASE EVENT DATE: 201801
